FAERS Safety Report 5299336-4 (Version None)
Quarter: 2007Q2

REPORT INFORMATION
  Report Type: 
  Country: None (occurrence: None)
  Receive Date: 20070411
  Receipt Date: 20070411
  Transmission Date: 20071010
  Serious: Yes (Hospitalization)
  Sender: FDA-Public Use
  Company Number: None

PATIENT
  Age: 71 Year
  Sex: Male
  Weight: 88 kg

DRUGS (7)
  1. ENOXAPARIN SODIUM [Suspect]
     Indication: DEEP VEIN THROMBOSIS
     Dosage: 40MG DAILY SQ
     Route: 058
     Dates: start: 20061211, end: 20061214
  2. WARFARIN SODIUM [Suspect]
     Indication: DEEP VEIN THROMBOSIS
     Dosage: 5MG OTO PO
     Route: 048
     Dates: start: 20061214
  3. POTASSIUM CHLORIDE [Concomitant]
  4. FOSINOPRIL SODIUM [Concomitant]
  5. PREDNISONE TAB [Concomitant]
  6. MARINOL [Concomitant]
  7. REGLAN [Concomitant]

REACTIONS (2)
  - HAEMORRHAGIC ANAEMIA [None]
  - LOWER GASTROINTESTINAL HAEMORRHAGE [None]
